FAERS Safety Report 5715274-4 (Version None)
Quarter: 2008Q2

REPORT INFORMATION
  Report Type: 
  Country: None (occurrence: None)
  Receive Date: 20080423
  Receipt Date: 20080411
  Transmission Date: 20081010
  Serious: Yes (Hospitalization)
  Sender: FDA-Public Use
  Company Number: TW-PFIZER INC-2008015098

PATIENT
  Sex: Female
  Weight: 48 kg

DRUGS (11)
  1. SU-011,248 [Suspect]
     Indication: GASTROINTESTINAL STROMAL TUMOUR
     Route: 048
  2. SU-011,248 [Suspect]
     Route: 048
  3. MYCOSTATIN [Concomitant]
     Route: 061
  4. MEDROXYPROGESTERONE ACETATE [Concomitant]
     Route: 048
  5. ALPRAZOLAM [Concomitant]
     Route: 048
  6. ACETAMINOPHEN [Concomitant]
     Route: 048
  7. CHLORZOXAZONE [Concomitant]
     Route: 048
  8. MAGNESIUM OXIDE [Concomitant]
     Route: 048
  9. DEXTROMETHORPHAN HYDROBROMIDE [Concomitant]
     Route: 048
  10. INDOMETHACIN [Concomitant]
     Route: 061
  11. LORAZEPAM [Concomitant]
     Route: 048

REACTIONS (6)
  - BONE MARROW FAILURE [None]
  - HAEMATOCHEZIA [None]
  - HYPOTHYROIDISM [None]
  - LARYNGEAL OEDEMA [None]
  - PNEUMONIA [None]
  - REFLUX OESOPHAGITIS [None]
